FAERS Safety Report 13882628 (Version 4)
Quarter: 2017Q4

REPORT INFORMATION
  Report Type: Spontaneous
  Country: GB (occurrence: GB)
  Receive Date: 20170818
  Receipt Date: 20171215
  Transmission Date: 20180320
  Serious: Yes (Death)
  Sender: FDA-Public Use
  Company Number: GB-TEVA-795918ACC

PATIENT
  Age: 76 Year
  Sex: Male
  Weight: 76 kg

DRUGS (5)
  1. CIPROFLOXACIN HYDROCHLORIDE. [Suspect]
     Active Substance: CIPROFLOXACIN HYDROCHLORIDE
     Indication: BIOPSY PROSTATE
     Route: 030
     Dates: start: 20160919, end: 20160919
  2. CIPROFLOXACIN HYDROCHLORIDE. [Suspect]
     Active Substance: CIPROFLOXACIN HYDROCHLORIDE
     Indication: INFECTION PROPHYLAXIS
  3. METROGYL? [Concomitant]
     Indication: BIOPSY PROSTATE
     Dosage: 1 DOSAGE FORMS DAILY;
     Route: 042
     Dates: start: 20160919, end: 20160919
  4. CIPROFLOXACIN HYDROCHLORIDE. [Suspect]
     Active Substance: CIPROFLOXACIN HYDROCHLORIDE
     Indication: BIOPSY PROSTATE
     Dosage: 1000 MILLIGRAM DAILY;
     Route: 048
     Dates: start: 20160919, end: 20160924
  5. GENTAMICIN. [Concomitant]
     Active Substance: GENTAMICIN
     Indication: BIOPSY PROSTATE
     Dosage: 1 DOSAGE FORMS DAILY;
     Route: 042
     Dates: start: 20160919, end: 20160919

REACTIONS (5)
  - Paranoia [Unknown]
  - Confusional state [Unknown]
  - Agitation [Unknown]
  - Dysgraphia [Not Recovered/Not Resolved]
  - Completed suicide [Fatal]

NARRATIVE: CASE EVENT DATE: 201609
